FAERS Safety Report 8454779-2 (Version None)
Quarter: 2012Q2

REPORT INFORMATION
  Report Type: 
  Country: None (occurrence: None)
  Receive Date: 20120621
  Receipt Date: 20120615
  Transmission Date: 20120825
  Serious: Yes (Other)
  Sender: FDA-Public Use
  Company Number: US-JNJFOC-20110608967

PATIENT
  Age: 63 Year
  Sex: Male

DRUGS (20)
  1. HUMIRA [Concomitant]
     Dates: start: 20090127
  2. PREDNISONE TAB [Concomitant]
     Dates: start: 20090606
  3. PREDNISONE TAB [Concomitant]
     Dates: start: 20090507
  4. PREDNISONE TAB [Concomitant]
     Dates: start: 20090410
  5. MERCAPTOPURINE [Concomitant]
     Indication: PRODUCT USED FOR UNKNOWN INDICATION
     Dates: start: 20090703
  6. HUMIRA [Concomitant]
     Indication: PRODUCT USED FOR UNKNOWN INDICATION
     Dates: start: 20090220
  7. HUMIRA [Concomitant]
     Dates: start: 20090407
  8. HUMIRA [Concomitant]
     Dates: start: 20090224
  9. ASACOL [Concomitant]
     Indication: PRODUCT USED FOR UNKNOWN INDICATION
     Dates: start: 20090105
  10. REMICADE [Suspect]
     Indication: PRODUCT USED FOR UNKNOWN INDICATION
     Route: 042
     Dates: start: 20090610
  11. HUMIRA [Concomitant]
     Dates: start: 20090310
  12. ASACOL [Concomitant]
     Dates: start: 20090405
  13. HUMIRA [Concomitant]
     Dates: start: 20090320
  14. PREDNISONE TAB [Concomitant]
     Indication: PRODUCT USED FOR UNKNOWN INDICATION
     Dates: start: 20090312
  15. PREDNISONE TAB [Concomitant]
     Dates: start: 20090627
  16. REMICADE [Suspect]
     Route: 042
     Dates: start: 20090402
  17. REMICADE [Suspect]
     Route: 042
     Dates: start: 20090416
  18. REMICADE [Suspect]
     Route: 042
     Dates: start: 20090514
  19. PREDNISONE TAB [Concomitant]
     Dates: start: 20090528
  20. MERCAPTOPURINE [Concomitant]
     Dates: start: 20090603

REACTIONS (1)
  - PROGRESSIVE MULTIFOCAL LEUKOENCEPHALOPATHY [None]
